FAERS Safety Report 4980293-2 (Version None)
Quarter: 2006Q2

REPORT INFORMATION
  Report Type: 
  Country: None (occurrence: None)
  Receive Date: 20060420
  Receipt Date: 20060420
  Transmission Date: 20061013
  Serious: No
  Sender: FDA-Public Use
  Company Number: None

PATIENT

DRUGS (1)
  1. EXACTACAIN SPRAY    BENZOCAINE 14%,    HEALTHPOINT [Suspect]
     Indication: ANAESTHESIA
     Dosage: 3 SPRAYS   ONCE    OROPHARINGEAL
     Route: 049

REACTIONS (3)
  - CHOKING [None]
  - DEVICE FAILURE [None]
  - PHARMACEUTICAL PRODUCT COMPLAINT [None]
